FAERS Safety Report 20404413 (Version 1)
Quarter: 2022Q1

REPORT INFORMATION
  Report Type: Spontaneous
  Country: US (occurrence: US)
  Receive Date: 20220131
  Receipt Date: 20220131
  Transmission Date: 20220423
  Serious: No
  Sender: FDA-Public Use
  Company Number: US-BAUSCH-BL-2022-002001

PATIENT
  Age: 75 Year
  Sex: Male

DRUGS (3)
  1. BRIMONIDINE TARTRATE [Suspect]
     Active Substance: BRIMONIDINE TARTRATE
     Indication: Glaucoma
     Dosage: USING THIS PRODUCT FOR YEARS IN RIGHT EYE, 1 DROP IN THE MORNING AND 1 DROP IN THE EVENING
     Route: 047
     Dates: end: 202201
  2. LATANOPROST [Suspect]
     Active Substance: LATANOPROST
     Indication: Product used for unknown indication
     Dosage: IN BOTH  EYES
     Route: 047
  3. TIMOLOL [Suspect]
     Active Substance: TIMOLOL
     Indication: Product used for unknown indication
     Dosage: BOTH EYES
     Route: 047

REACTIONS (7)
  - Instillation site swelling [Recovering/Resolving]
  - Instillation site erythema [Recovering/Resolving]
  - Instillation site lacrimation [Unknown]
  - Dry eye [Unknown]
  - Eye pruritus [Unknown]
  - Wrong technique in device usage process [Unknown]
  - Inappropriate schedule of product administration [Unknown]
